FAERS Safety Report 5207057-9 (Version None)
Quarter: 2007Q1

REPORT INFORMATION
  Report Type: 
  Country: None (occurrence: None)
  Receive Date: 20070112
  Receipt Date: 20070102
  Transmission Date: 20070707
  Serious: Yes (Other)
  Sender: FDA-Public Use
  Company Number: 2003UW16210

PATIENT
  Age: 21711 Day
  Sex: Male
  Weight: 59.1 kg

DRUGS (6)
  1. PRILOSEC [Suspect]
     Route: 048
     Dates: start: 19900101
  2. PRILOSEC OTC [Suspect]
     Indication: GASTROOESOPHAGEAL REFLUX DISEASE
     Route: 048
     Dates: start: 20031110, end: 20031208
  3. ATIVAN [Concomitant]
  4. FLONASE [Concomitant]
  5. SOMA [Concomitant]
  6. ANTACID TAB [Concomitant]

REACTIONS (3)
  - INTENTIONAL DRUG MISUSE [None]
  - OESOPHAGEAL POLYP [None]
  - OSTEOPOROSIS [None]
